FAERS Safety Report 24988059 (Version 1)
Quarter: 2025Q1

REPORT INFORMATION
  Report Type: Report from Study
  Country: EG (occurrence: EG)
  Receive Date: 20250220
  Receipt Date: 20250220
  Transmission Date: 20250409
  Serious: Yes (Other)
  Sender: ROCHE
  Company Number: EG-ROCHE-10000211067

PATIENT
  Age: 39 Year
  Sex: Female
  Weight: 65 kg

DRUGS (3)
  1. PERJETA [Suspect]
     Active Substance: PERTUZUMAB
     Indication: Breast cancer
     Route: 011
     Dates: start: 20240124, end: 20250122
  2. PERJETA [Suspect]
     Active Substance: PERTUZUMAB
     Indication: Lung neoplasm malignant
  3. HERCEPTIN [Suspect]
     Active Substance: TRASTUZUMAB
     Indication: Lung neoplasm malignant
     Route: 040

REACTIONS (3)
  - Disease progression [Unknown]
  - Off label use [Unknown]
  - Brain neoplasm malignant [Unknown]

NARRATIVE: CASE EVENT DATE: 20240124
